FAERS Safety Report 9332798 (Version 1)
Quarter: 2013Q2

REPORT INFORMATION
  Report Type: Spontaneous
  Country: JP (occurrence: None)
  Receive Date: 20130603
  Receipt Date: 20130603
  Transmission Date: 20140414
  Serious: Yes (Other)
  Sender: FDA-Public Use
  Company Number: 2013P1006451

PATIENT
  Age: 46 Year
  Sex: Male

DRUGS (3)
  1. HEPARIN [Suspect]
     Indication: CARDIOPULMONARY BYPASS
     Route: 042
  2. HEPARIN [Suspect]
     Indication: ATRIAL FIBRILLATION
     Route: 042
  3. WARFARIN [Concomitant]

REACTIONS (3)
  - Heparin-induced thrombocytopenia [None]
  - Atrial fibrillation [None]
  - Liver disorder [None]
